FAERS Safety Report 5733127-2 (Version None)
Quarter: 2008Q2

REPORT INFORMATION
  Report Type: 
  Country: None (occurrence: None)
  Receive Date: 20080509
  Receipt Date: 20080509
  Transmission Date: 20081010
  Serious: Yes (Hospitalization, Other)
  Sender: FDA-Public Use
  Company Number: None

PATIENT
  Age: 26 Year
  Sex: Female
  Weight: 61.2356 kg

DRUGS (1)
  1. HEPARIN [Suspect]
     Indication: COAGULOPATHY
     Dosage: 075 ML BID SQ
     Route: 058
     Dates: start: 20071214, end: 20071219

REACTIONS (6)
  - CAESAREAN SECTION [None]
  - DRUG EXPOSURE DURING PREGNANCY [None]
  - DRUG HYPERSENSITIVITY [None]
  - FLUSHING [None]
  - INJECTION SITE HYPERSENSITIVITY [None]
  - MALAISE [None]
